FAERS Safety Report 8576036 (Version 19)
Quarter: 2014Q4

REPORT INFORMATION
  Report Type: Spontaneous
  Country: US (occurrence: US)
  Receive Date: 20120523
  Receipt Date: 20141117
  Transmission Date: 20150529
  Serious: Yes (Death, Hospitalization, Other)
  Sender: FDA-Public Use
  Company Number: US-GLAXOSMITHKLINE-A0978613A

PATIENT
  Age: 50 Year
  Sex: Male
  Weight: 107.7 kg

DRUGS (24)
  1. FLOLAN [Suspect]
     Active Substance: EPOPROSTENOL SODIUM
     Dosage: UNK
     Dates: start: 20050317
  2. FLOLAN [Suspect]
     Active Substance: EPOPROSTENOL SODIUM
     Dosage: 48 NG/KG/MIN, 90,000 NG/ML CONCENTRATION, 84 ML/DAY PUMP RATE, 1.5 MG VIAL STRENGTH
  3. INSULIN LISPRO [Concomitant]
     Active Substance: INSULIN LISPRO
  4. FLOLAN [Suspect]
     Active Substance: EPOPROSTENOL SODIUM
     Dosage: UNK
     Dates: start: 20050317
  5. REVATIO [Concomitant]
     Active Substance: SILDENAFIL CITRATE
  6. FLOLAN [Suspect]
     Active Substance: EPOPROSTENOL SODIUM
     Dosage: UNK
     Dates: start: 20050317
  7. FLOLAN [Suspect]
     Active Substance: EPOPROSTENOL SODIUM
     Dosage: 48 NG/KG/MIN, 90,000 NG/ML CONCENTRATION, 84 ML/DAY PUMP RATE, 1.5 MG VIAL STRENGTH
     Dates: start: 20050325
  8. OXYGEN. [Concomitant]
     Active Substance: OXYGEN
  9. FLOLAN [Suspect]
     Active Substance: EPOPROSTENOL SODIUM
     Dosage: UNK
     Dates: start: 20050325
  10. TRICOR [Concomitant]
     Active Substance: FENOFIBRATE
  11. LASIX [Concomitant]
     Active Substance: FUROSEMIDE
  12. FLOLAN [Suspect]
     Active Substance: EPOPROSTENOL SODIUM
     Indication: PULMONARY ARTERIAL HYPERTENSION
     Dosage: DOSE: 48 NG/KG/MIN CONTINUOUSLYCONCENTRATION: 90,000 NG/MLPUMP RATE: 84 ML/DAYVIAL STRENGTH: 1.5 MG
     Route: 042
     Dates: start: 20050317
  13. FLOLAN [Suspect]
     Active Substance: EPOPROSTENOL SODIUM
     Dosage: UNK
     Dates: start: 20050317
  14. INSULIN [Concomitant]
     Active Substance: INSULIN NOS
  15. CARDIZEM [Concomitant]
     Active Substance: DILTIAZEM HYDROCHLORIDE
  16. DILTIAZEM HYDROCHLORIDE EXTENDED RELEASE [Concomitant]
     Active Substance: DILTIAZEM HYDROCHLORIDE
  17. ESOMEPRAZOLE [Concomitant]
     Active Substance: ESOMEPRAZOLE
  18. FLOLAN [Suspect]
     Active Substance: EPOPROSTENOL SODIUM
     Dosage: UNK
     Dates: start: 20050317
  19. ATIVAN [Concomitant]
     Active Substance: LORAZEPAM
  20. COUMADIN [Concomitant]
     Active Substance: WARFARIN SODIUM
  21. AMIODARONE [Concomitant]
     Active Substance: AMIODARONE
  22. LANTUS [Concomitant]
     Active Substance: INSULIN GLARGINE
  23. POTASSIUM [Concomitant]
     Active Substance: POTASSIUM
  24. NORVASC [Concomitant]
     Active Substance: AMLODIPINE BESYLATE

REACTIONS (28)
  - Impaired gastric emptying [Unknown]
  - Heart rate increased [Recovering/Resolving]
  - Arterial occlusive disease [Recovering/Resolving]
  - Catheter placement [Unknown]
  - Arterial stenosis [Recovering/Resolving]
  - Chest discomfort [Recovering/Resolving]
  - Local swelling [Recovering/Resolving]
  - Pyrexia [Recovering/Resolving]
  - Jugular vein thrombosis [Recovering/Resolving]
  - Fluid retention [Unknown]
  - Thrombosis [Recovering/Resolving]
  - Atrial fibrillation [Recovering/Resolving]
  - Pain [Recovering/Resolving]
  - Superior vena cava syndrome [Recovering/Resolving]
  - Liver disorder [Unknown]
  - Hospitalisation [Unknown]
  - Infusion site infection [Recovering/Resolving]
  - Dyspnoea [Unknown]
  - Venous occlusion [Recovering/Resolving]
  - Peripheral swelling [Recovering/Resolving]
  - Influenza [Recovering/Resolving]
  - Venous stenosis [Recovering/Resolving]
  - Death [Fatal]
  - Headache [Recovering/Resolving]
  - Weight decreased [Recovering/Resolving]
  - Weight increased [Recovering/Resolving]
  - Cough [Recovering/Resolving]
  - Swelling face [Recovering/Resolving]

NARRATIVE: CASE EVENT DATE: 20120511
